FAERS Safety Report 18545068 (Version 1)
Quarter: 2020Q4

REPORT INFORMATION
  Report Type: Report from Study
  Country: US (occurrence: US)
  Receive Date: 20201125
  Receipt Date: 20201125
  Transmission Date: 20210114
  Serious: Yes (Hospitalization)
  Sender: FDA-Public Use
  Company Number: US-TEVA-2020-US-1853376

PATIENT
  Age: 46 Year
  Sex: Female
  Weight: 90 kg

DRUGS (56)
  1. LOVENOX [Concomitant]
     Active Substance: ENOXAPARIN SODIUM
     Indication: PLATELET COUNT DECREASED
     Dates: start: 20180929, end: 20181001
  2. DURAMORPH [Concomitant]
     Active Substance: MORPHINE SULFATE
     Dates: start: 20180928, end: 20180929
  3. EMEND [Concomitant]
     Active Substance: APREPITANT
     Dates: start: 20181002, end: 20181002
  4. URSODIOL. [Concomitant]
     Active Substance: URSODIOL
     Indication: HYPERBILIRUBINAEMIA
     Dates: start: 20181013
  5. ZOSYN [Concomitant]
     Active Substance: PIPERACILLIN SODIUM\TAZOBACTAM SODIUM
     Indication: LEUKOCYTOSIS
     Dates: start: 20180926, end: 20180926
  6. ZOSYN [Concomitant]
     Active Substance: PIPERACILLIN SODIUM\TAZOBACTAM SODIUM
     Indication: LYMPHADENOPATHY
     Dates: start: 20181010, end: 20181010
  7. ZOSYN [Concomitant]
     Active Substance: PIPERACILLIN SODIUM\TAZOBACTAM SODIUM
     Indication: FEBRILE NEUTROPENIA
     Dates: start: 20181014, end: 20181017
  8. ZOSYN [Concomitant]
     Active Substance: PIPERACILLIN SODIUM\TAZOBACTAM SODIUM
     Indication: PROPHYLAXIS
  9. LASIX [Concomitant]
     Active Substance: FUROSEMIDE
     Indication: FLUID OVERLOAD
     Dates: start: 20181014, end: 20181014
  10. AVAPRO [Concomitant]
     Active Substance: IRBESARTAN
     Indication: HYPERTENSION
     Dates: end: 20180926
  11. ZYLOPRIM [Concomitant]
     Active Substance: ALLOPURINOL
     Indication: PROPHYLAXIS
     Dates: start: 20180927, end: 20180928
  12. PEPCID [Concomitant]
     Active Substance: FAMOTIDINE
     Dates: start: 20181002, end: 20181009
  13. DURAMORPH [Concomitant]
     Active Substance: MORPHINE SULFATE
     Dates: start: 20181007, end: 20181009
  14. ZOFRAN [Concomitant]
     Active Substance: ONDANSETRON HYDROCHLORIDE
     Indication: NAUSEA
     Dates: start: 20180926
  15. XYLOCAINE VISCOUS [Concomitant]
     Active Substance: LIDOCAINE HYDROCHLORIDE
     Indication: ORAL PAIN
     Dates: start: 20181002, end: 20181025
  16. MAXIPINE [Concomitant]
     Indication: FEBRILE NEUTROPENIA
     Dates: start: 20181007, end: 20181014
  17. CARAFATE [Concomitant]
     Active Substance: SUCRALFATE
     Indication: LOWER GASTROINTESTINAL HAEMORRHAGE
     Dates: start: 20181009, end: 20181016
  18. PERIDEX [Concomitant]
     Active Substance: CHLORHEXIDINE GLUCONATE
     Indication: ORAL DISORDER
     Dates: start: 20180927, end: 20180927
  19. IMODIUM A-D [Concomitant]
     Active Substance: LOPERAMIDE HYDROCHLORIDE
     Indication: DIARRHOEA
     Dates: start: 20181010
  20. CYTARABINE. [Suspect]
     Active Substance: CYTARABINE
     Indication: ACUTE MYELOID LEUKAEMIA
     Dosage: 200 MILLIGRAM DAILY; DAILY BY CONTINUOUS INFUSION
     Route: 041
     Dates: start: 20181002, end: 20181008
  21. OZURDEX [Concomitant]
     Active Substance: DEXAMETHASONE
     Dates: start: 20181002, end: 20181004
  22. MAALOX ANTACID [Concomitant]
     Active Substance: ALUMINUM HYDROXIDE\DIMETHICONE\MAGNESIUM HYDROXIDE
     Indication: GASTROOESOPHAGEAL REFLUX DISEASE
     Dates: start: 20180928
  23. TUMS [Concomitant]
     Active Substance: CALCIUM CARBONATE
     Indication: GASTROOESOPHAGEAL REFLUX DISEASE
     Dates: start: 20181003, end: 20181016
  24. LOMOTIL [Concomitant]
     Active Substance: ATROPINE SULFATE\DIPHENOXYLATE HYDROCHLORIDE
     Indication: DIARRHOEA
     Dates: start: 20181011, end: 20181015
  25. ZOFRAN [Concomitant]
     Active Substance: ONDANSETRON HYDROCHLORIDE
     Dates: start: 20181002, end: 20181006
  26. ZOFRAN [Concomitant]
     Active Substance: ONDANSETRON HYDROCHLORIDE
     Dates: start: 20181010, end: 20181016
  27. RYDAPT [Suspect]
     Active Substance: MIDOSTAURIN
     Indication: ACUTE MYELOID LEUKAEMIA
     Dosage: 100 MILLIGRAM DAILY;
     Route: 048
     Dates: start: 20181009, end: 20181011
  28. ZOVIRAX [Concomitant]
     Active Substance: ACYCLOVIR
     Indication: ANTIVIRAL PROPHYLAXIS
     Dates: start: 20180928
  29. ADDERALL [Concomitant]
     Active Substance: AMPHETAMINE ASPARTATE\AMPHETAMINE SULFATE\DEXTROAMPHETAMINE SACCHARATE\DEXTROAMPHETAMINE SULFATE
     Indication: ATTENTION DEFICIT HYPERACTIVITY DISORDER
     Dates: start: 20180927
  30. PEPCID [Concomitant]
     Active Substance: FAMOTIDINE
     Indication: GASTROOESOPHAGEAL REFLUX DISEASE
     Dates: start: 20180927, end: 20180927
  31. PEPCID [Concomitant]
     Active Substance: FAMOTIDINE
     Dates: start: 20180928, end: 20180929
  32. PEPCID [Concomitant]
     Active Substance: FAMOTIDINE
     Dates: start: 20180930, end: 20181002
  33. MYCAMINE [Concomitant]
     Active Substance: MICAFUNGIN SODIUM
     Indication: ANTIFUNGAL PROPHYLAXIS
     Dates: start: 20180930
  34. TYLENOL [Concomitant]
     Active Substance: ACETAMINOPHEN
     Indication: PROPHYLAXIS
     Dates: start: 20181004, end: 20181013
  35. PROTONIX [Concomitant]
     Active Substance: PANTOPRAZOLE SODIUM
     Indication: GASTROOESOPHAGEAL REFLUX DISEASE
     Dates: start: 20181009, end: 20181016
  36. CLINDAMYCIN. [Concomitant]
     Active Substance: CLINDAMYCIN
     Indication: OROPHARYNGEAL PAIN
     Dates: start: 20180912, end: 20180913
  37. ZYLOPRIM [Concomitant]
     Active Substance: ALLOPURINOL
     Dates: start: 20180928, end: 20181008
  38. MAGNESIUM [Concomitant]
     Active Substance: MAGNESIUM
     Dates: start: 20180929
  39. LEVAQUIN [Concomitant]
     Active Substance: LEVOFLOXACIN
     Indication: PROPHYLAXIS
     Dates: start: 20181003, end: 20181007
  40. ADDERALL [Concomitant]
     Active Substance: AMPHETAMINE ASPARTATE\AMPHETAMINE SULFATE\DEXTROAMPHETAMINE SACCHARATE\DEXTROAMPHETAMINE SULFATE
     Dates: start: 20180928, end: 20180928
  41. NORCO [Concomitant]
     Active Substance: ACETAMINOPHEN\HYDROCODONE BITARTRATE
     Indication: ODYNOPHAGIA
     Dates: start: 20180928
  42. HYDROXYUREA. [Concomitant]
     Active Substance: HYDROXYUREA
     Indication: LEUKOCYTOSIS
     Dates: start: 20180928, end: 20181001
  43. DURAMORPH [Concomitant]
     Active Substance: MORPHINE SULFATE
     Indication: ORAL PAIN
     Dates: start: 20180926
  44. NYAMYC [Concomitant]
     Active Substance: NYSTATIN
     Indication: ORAL CANDIDIASIS
     Dates: start: 20180930, end: 20181013
  45. SENOKOT [Concomitant]
     Active Substance: SENNOSIDES
     Indication: CONSTIPATION
     Dates: start: 20180929, end: 20181002
  46. POTASSIUM [Concomitant]
     Active Substance: POTASSIUM
     Dates: start: 20180930, end: 20181014
  47. PROTONIX [Concomitant]
     Active Substance: PANTOPRAZOLE SODIUM
     Dates: end: 20180926
  48. DAUNORUBICIN [Suspect]
     Active Substance: DAUNORUBICIN
     Indication: ACUTE MYELOID LEUKAEMIA
     Dosage: 120 MILLIGRAM DAILY; DAILY BY CONTINUOUS INFUSION
     Route: 041
     Dates: start: 20181002, end: 20181004
  49. OZURDEX [Concomitant]
     Active Substance: DEXAMETHASONE
     Indication: PROPHYLAXIS
     Dates: start: 20180926, end: 20180926
  50. OZURDEX [Concomitant]
     Active Substance: DEXAMETHASONE
     Dates: start: 20181007, end: 20181008
  51. PEPCID [Concomitant]
     Active Substance: FAMOTIDINE
     Dates: start: 20180928, end: 20180928
  52. ATIVAN [Concomitant]
     Active Substance: LORAZEPAM
     Indication: STRESS
     Dates: start: 20180930, end: 20181012
  53. PCA [Concomitant]
     Dates: start: 20181009, end: 20181022
  54. SENOKOT [Concomitant]
     Active Substance: SENNOSIDES
     Dates: start: 20181002, end: 20181016
  55. BENTYL [Concomitant]
     Active Substance: DICYCLOMINE HYDROCHLORIDE
     Indication: DIARRHOEA
     Dates: start: 20181010
  56. DIFLUCAN [Concomitant]
     Active Substance: FLUCONAZOLE
     Indication: ANTIFUNGAL PROPHYLAXIS
     Dates: start: 20180928, end: 20180930

REACTIONS (1)
  - Hyperbilirubinaemia [Recovered/Resolved]

NARRATIVE: CASE EVENT DATE: 20181015
